FAERS Safety Report 20060475 (Version 1)
Quarter: 2021Q4

REPORT INFORMATION
  Report Type: Report from Study
  Country: MX (occurrence: MX)
  Receive Date: 20211112
  Receipt Date: 20211112
  Transmission Date: 20220303
  Serious: Yes (Other)
  Sender: FDA-Public Use
  Company Number: MX-NOVARTISPH-NVSC2021MX235903

PATIENT
  Age: 63 Year
  Sex: Male
  Weight: 144 kg

DRUGS (4)
  1. DIOVAN [Suspect]
     Active Substance: VALSARTAN
     Indication: Hypertension
     Dosage: 1 DF (160 MG)
     Route: 065
  2. DIOVAN [Suspect]
     Active Substance: VALSARTAN
     Dosage: UNK, QD (2 ? (160 MG)
     Route: 065
  3. DIOVAN [Suspect]
     Active Substance: VALSARTAN
     Dosage: 1 DF(80 MG), BID,INDICATED THAT TOOK 1 TABLET 5 TIMES PER DAY
     Route: 048
     Dates: start: 202110
  4. ROFUCAL [Concomitant]
     Indication: Blood pressure measurement
     Dosage: 25 MG, QD
     Route: 048
     Dates: start: 202108

REACTIONS (5)
  - Diabetes mellitus [Unknown]
  - Hypertension [Recovering/Resolving]
  - COVID-19 [Recovered/Resolved]
  - Incorrect dosage administered [Unknown]
  - Wrong technique in product usage process [Unknown]

NARRATIVE: CASE EVENT DATE: 20210801
